FAERS Safety Report 24660262 (Version 2)
Quarter: 2024Q4

REPORT INFORMATION
  Report Type: Spontaneous
  Country: CN (occurrence: CN)
  Receive Date: 20241125
  Receipt Date: 20241203
  Transmission Date: 20250115
  Serious: Yes (Hospitalization)
  Sender: PERRIGO
  Company Number: CN-MLMSERVICE-20241114-PI256863-00031-1

PATIENT
  Age: 27 Year
  Sex: Male

DRUGS (3)
  1. OMEPRAZOLE MAGNESIUM [Suspect]
     Active Substance: OMEPRAZOLE MAGNESIUM
     Indication: Chronic gastritis
     Dosage: 40 MG, QD
     Route: 048
  2. SILIBININ [Concomitant]
     Active Substance: SILIBININ
     Indication: Product used for unknown indication
     Dosage: UNKNOWN, UNKNOWN
     Route: 065
  3. URSODIOL [Concomitant]
     Active Substance: URSODIOL
     Indication: Product used for unknown indication
     Dosage: UNKNOWN, UNKNOWN
     Route: 065

REACTIONS (1)
  - Insulin autoimmune syndrome [Recovered/Resolved]
